FAERS Safety Report 7571913-7 (Version None)
Quarter: 2011Q2

REPORT INFORMATION
  Report Type: 
  Country: None (occurrence: None)
  Receive Date: 20110624
  Receipt Date: 20101028
  Transmission Date: 20111010
  Serious: No
  Sender: FDA-Public Use
  Company Number: A0889730A

PATIENT
  Age: 34 Year
  Sex: Female
  Weight: 77.3 kg

DRUGS (2)
  1. ASMANEX TWISTHALER [Concomitant]
     Indication: ASTHMA
     Dosage: 440MCG UNKNOWN
     Route: 065
     Dates: start: 20100729
  2. VERAMYST [Suspect]
     Indication: BRONCHITIS
     Route: 045
     Dates: start: 20100729, end: 20100901

REACTIONS (2)
  - MIGRAINE [None]
  - CSF VOLUME INCREASED [None]
